FAERS Safety Report 7215839-7 (Version None)
Quarter: 2011Q1

REPORT INFORMATION
  Report Type: 
  Country: None (occurrence: None)
  Receive Date: 20110107
  Receipt Date: 20101223
  Transmission Date: 20110831
  Serious: Yes (Other)
  Sender: FDA-Public Use
  Company Number: GB-GENENTECH-311849

PATIENT
  Sex: Female
  Weight: 132.2 kg

DRUGS (1)
  1. XOLAIR [Suspect]
     Indication: ASTHMA
     Dosage: 375 MG, Q2W
     Route: 058
     Dates: start: 20101027, end: 20101126

REACTIONS (2)
  - OEDEMA PERIPHERAL [None]
  - LOCALISED OEDEMA [None]
